FAERS Safety Report 4572957-X (Version None)
Quarter: 2005Q1

REPORT INFORMATION
  Report Type: 
  Country: None (occurrence: None)
  Receive Date: 20050203
  Receipt Date: 20041129
  Transmission Date: 20050727
  Serious: Yes (Hospitalization)
  Sender: FDA-Public Use
  Company Number: 2004JP001620

PATIENT
  Age: 49 Year
  Sex: Male
  Weight: 68 kg

DRUGS (1)
  1. PROTOPIC [Suspect]
     Indication: DERMATITIS ATOPIC
     Dosage: 0.10%, TOPICAL
     Route: 061
     Dates: start: 20020325, end: 20040530

REACTIONS (4)
  - B-CELL LYMPHOMA STAGE I [None]
  - ECZEMA [None]
  - EPSTEIN-BARR VIRUS INFECTION [None]
  - LUNG CARCINOMA CELL TYPE UNSPECIFIED STAGE I [None]
